FAERS Safety Report 25585801 (Version 1)
Quarter: 2025Q3

REPORT INFORMATION
  Report Type: Spontaneous
  Country: US (occurrence: None)
  Receive Date: 20250719
  Receipt Date: 20250719
  Transmission Date: 20251020
  Serious: No
  Sender: FDA-CTU
  Company Number: None

PATIENT
  Age: 51 Year
  Sex: Male
  Weight: 101 kg

DRUGS (6)
  1. CYCLOPHOSPHAMIDE [Suspect]
     Active Substance: CYCLOPHOSPHAMIDE
     Dates: end: 20250710
  2. CYTARABINE [Suspect]
     Active Substance: CYTARABINE
     Dates: end: 20250708
  3. SPRYCEL [Suspect]
     Active Substance: DASATINIB
     Dates: end: 20250716
  4. DEXAMETHASONE [Suspect]
     Active Substance: DEXAMETHASONE
     Dates: end: 20250710
  5. MESNA [Suspect]
     Active Substance: MESNA
     Dates: end: 20250709
  6. PONATINIB [Suspect]
     Active Substance: PONATINIB
     Dates: end: 20250610

REACTIONS (4)
  - Bradycardia [None]
  - Hyperhidrosis [None]
  - Pulse absent [None]
  - Agonal respiration [None]

NARRATIVE: CASE EVENT DATE: 20250710
